FAERS Safety Report 8406595-5 (Version None)
Quarter: 2012Q2

REPORT INFORMATION
  Report Type: 
  Country: None (occurrence: None)
  Receive Date: 20120604
  Receipt Date: 20120528
  Transmission Date: 20120825
  Serious: Yes (Hospitalization)
  Sender: FDA-Public Use
  Company Number: IT-UCBSA-057631

PATIENT
  Age: 87 Year
  Sex: Female

DRUGS (6)
  1. LEVOTHYROXINE SODIUM [Concomitant]
     Indication: HYPOTHYROIDISM
     Dosage: 100 ?G, 50 TABLETS
     Route: 048
  2. ASPIRIN [Concomitant]
     Indication: CARDIOVASCULAR EVENT PROPHYLAXIS
     Dosage: 160 MG 30 SACHETS
     Route: 048
  3. FELDENE FAST [Concomitant]
     Indication: PAIN
     Dosage: 200 MG, 20 SUBLINGUAL TABLETS
     Route: 060
  4. ISOSORBIDE MONONITRATE [Suspect]
     Indication: ANGINA PECTORIS
     Dosage: DAILY DOSE:20 MG
     Route: 048
     Dates: start: 20120402, end: 20120402
  5. CORDARONE [Suspect]
     Indication: VENTRICULAR ARRHYTHMIA
     Dosage: 200 MG,20 TABLETS
     Route: 048
     Dates: start: 20120402, end: 20120402
  6. SIMVASTATIN [Concomitant]
     Indication: CARDIOVASCULAR EVENT PROPHYLAXIS
     Dosage: DAILY DOSE:20 MG
     Route: 048

REACTIONS (1)
  - SYNCOPE [None]
